FAERS Safety Report 11114669 (Version 1)
Quarter: 2015Q2

REPORT INFORMATION
  Report Type: Spontaneous
  Country: RU (occurrence: None)
  Receive Date: 20150512
  Receipt Date: 20150512
  Transmission Date: 20150821
  Serious: Yes (Other)
  Sender: FDA-Public Use
  Company Number: 2015HINSPO0428

PATIENT
  Age: 11 Year
  Sex: Male
  Weight: 22 kg

DRUGS (2)
  1. SUXILEP (ETHOSUXIMIDE) [Concomitant]
  2. LEVETIRACETAM (LEVETIRACETAM) TABLET, 500MG [Suspect]
     Active Substance: LEVETIRACETAM
     Indication: EPILEPSY
     Route: 048
     Dates: start: 20150128, end: 20150228

REACTIONS (6)
  - Epilepsy [None]
  - Muscular weakness [None]
  - Movement disorder [None]
  - Headache [None]
  - Drug ineffective [None]
  - Salivary hypersecretion [None]

NARRATIVE: CASE EVENT DATE: 20150228
